FAERS Safety Report 15265163 (Version 1)
Quarter: 2018Q3

REPORT INFORMATION
  Report Type: Spontaneous
  Country: US (occurrence: US)
  Receive Date: 20180723
  Receipt Date: 20180723
  Transmission Date: 20181010
  Serious: Yes (Life-Threatening, Hospitalization, Disabling, Other)
  Sender: FDA-Public Use
  Company Number: None

PATIENT
  Age: 39 Year
  Sex: Male
  Weight: 101 kg

DRUGS (1)
  1. TRUVADA [Suspect]
     Active Substance: EMTRICITABINE\TENOFOVIR DISOPROXIL FUMARATE
     Indication: PRODUCT USED FOR UNKNOWN INDICATION
     Route: 048
     Dates: start: 20180709, end: 20180715

REACTIONS (7)
  - Hypertension [None]
  - Fall [None]
  - Guillain-Barre syndrome [None]
  - Muscular weakness [None]
  - Urticaria [None]
  - Paresis [None]
  - Paraesthesia [None]

NARRATIVE: CASE EVENT DATE: 20180716
